FAERS Safety Report 7092014-0 (Version None)
Quarter: 2010Q4

REPORT INFORMATION
  Report Type: 
  Country: None (occurrence: None)
  Receive Date: 20101109
  Receipt Date: 20080717
  Transmission Date: 20110411
  Serious: No
  Sender: FDA-Public Use
  Company Number: US-KINGPHARMUSA00001-K200800858

PATIENT
  Sex: Male
  Weight: 72.562 kg

DRUGS (2)
  1. EPIPEN [Suspect]
     Dosage: UNK, SINGLE
     Dates: start: 20080717, end: 20080717
  2. LANTUS [Concomitant]
     Indication: DIABETES MELLITUS
     Dosage: 30 U, QD

REACTIONS (3)
  - CHEST PAIN [None]
  - DRUG INEFFECTIVE [None]
  - INJECTION SITE HAEMORRHAGE [None]
